FAERS Safety Report 4607952-5 (Version None)
Quarter: 2005Q2

REPORT INFORMATION
  Report Type: 
  Country: None (occurrence: None)
  Receive Date: 20050303
  Receipt Date: 20041014
  Transmission Date: 20051028
  Serious: Yes (Other)
  Sender: FDA-Public Use
  Company Number: 208811

PATIENT
  Age: 49 Year
  Sex: Female
  Weight: 53.5 kg

DRUGS (8)
  1. XOLAIR [Suspect]
     Indication: ASTHMA
     Dosage: 300 MG, 1/MONTH
     Dates: start: 20030901
  2. ADVAIR (SALMETEROL XINAFOATE, FLUTICASONE PROPIONATE) [Concomitant]
  3. SINGULAIR [Concomitant]
  4. LO/OVRAL [Concomitant]
  5. ALLEGRA [Concomitant]
  6. RHINOCORT [Concomitant]
  7. IBUPROFEN [Concomitant]
  8. MULTIVITAMIN (MULTIVITAMINS NOS) [Concomitant]

REACTIONS (1)
  - BREAST CANCER IN SITU [None]
